FAERS Safety Report 7550637-6 (Version None)
Quarter: 2011Q2

REPORT INFORMATION
  Report Type: 
  Country: None (occurrence: None)
  Receive Date: 20110616
  Receipt Date: 20110603
  Transmission Date: 20111010
  Serious: Yes (Other)
  Sender: FDA-Public Use
  Company Number: AR-AMGEN-US429341

PATIENT
  Age: 57 Year
  Sex: Female
  Weight: 90 kg

DRUGS (8)
  1. LEVOTHYROXINE                      /00068002/ [Concomitant]
     Indication: HYPOTHYROIDISM
     Dosage: 100 MG, QD
  2. LOTRIAL                            /00574902/ [Concomitant]
     Indication: HYPERTENSION
     Dosage: 10 MG, QD
  3. ENBREL [Suspect]
     Indication: RHEUMATOID ARTHRITIS
     Dosage: 50 MG, WEEKLY
     Route: 058
     Dates: start: 20100616, end: 20101201
  4. OMEPRAZOLE [Concomitant]
     Dosage: 20 MG, QD
  5. MEPREDNISONE [Concomitant]
     Dosage: 4 MG, ALTERNATE DAY
  6. METHOTREXATE [Concomitant]
     Indication: RHEUMATOID ARTHRITIS
     Dosage: 10 MG, QWK
  7. ACIFOL [Concomitant]
     Indication: RHEUMATOID ARTHRITIS
     Dosage: UNK
  8. NAPRUX [Concomitant]
     Indication: PAIN
     Dosage: 500 MG, AS NEEDED

REACTIONS (1)
  - LIVER DISORDER [None]
